FAERS Safety Report 12434542 (Version 1)
Quarter: 2016Q2

REPORT INFORMATION
  Report Type: Spontaneous
  Country: HU (occurrence: HU)
  Receive Date: 20160603
  Receipt Date: 20160603
  Transmission Date: 20160815
  Serious: Yes (Other)
  Sender: FDA-Public Use
  Company Number: HU-MYLANLABS-2016M1022528

PATIENT

DRUGS (1)
  1. SELEGILINE [Suspect]
     Active Substance: SELEGILINE
     Indication: PARKINSON^S DISEASE
     Dosage: 10 MG, QD
     Dates: start: 1987

REACTIONS (8)
  - Nausea [Unknown]
  - Fall [Unknown]
  - Cognitive disorder [Unknown]
  - Gait disturbance [Unknown]
  - Hallucination [Unknown]
  - Insomnia [Unknown]
  - Femur fracture [Unknown]
  - Agitation [Unknown]

NARRATIVE: CASE EVENT DATE: 2012
